FAERS Safety Report 18458007 (Version 1)
Quarter: 2020Q4

REPORT INFORMATION
  Report Type: Spontaneous
  Country: CA (occurrence: CA)
  Receive Date: 20201103
  Receipt Date: 20201103
  Transmission Date: 20210114
  Serious: Yes (Life-Threatening, Hospitalization)
  Sender: FDA-Public Use
  Company Number: CA-PFIZER INC-2020423096

PATIENT
  Age: 43 Year
  Sex: Male
  Weight: 113 kg

DRUGS (1)
  1. DEXMEDETOMIDINE HYDROCHLORIDE. [Suspect]
     Active Substance: DEXMEDETOMIDINE HYDROCHLORIDE
     Indication: DELIRIUM
     Dosage: 1 DF

REACTIONS (6)
  - Product use in unapproved indication [Unknown]
  - Acute kidney injury [Recovered/Resolved]
  - Blood creatinine increased [Recovered/Resolved]
  - Hyperthermia [Recovered/Resolved]
  - Off label use [Unknown]
  - Rhabdomyolysis [Recovered/Resolved]
